FAERS Safety Report 5525576-2 (Version None)
Quarter: 2007Q4

REPORT INFORMATION
  Report Type: 
  Country: None (occurrence: None)
  Receive Date: 20071126
  Receipt Date: 20071122
  Transmission Date: 20080405
  Serious: Yes (Other)
  Sender: FDA-Public Use
  Company Number: B0496635A

PATIENT
  Age: 63 Year
  Sex: Female
  Weight: 80 kg

DRUGS (8)
  1. ARIXTRA [Suspect]
     Indication: THROMBOSIS PROPHYLAXIS
     Dosage: 2.5MG PER DAY
     Route: 058
     Dates: start: 20071109, end: 20071113
  2. NORVASC [Concomitant]
     Route: 048
  3. OLMETEC [Concomitant]
     Route: 048
  4. THYRADIN [Concomitant]
     Route: 048
  5. URSO 250 [Concomitant]
     Route: 048
  6. LOXONIN [Concomitant]
  7. DASEN [Concomitant]
     Route: 048
  8. SELBEX [Concomitant]
     Route: 048

REACTIONS (1)
  - HAEMATEMESIS [None]
